FAERS Safety Report 7584023-X (Version None)
Quarter: 2011Q2

REPORT INFORMATION
  Report Type: 
  Country: None (occurrence: None)
  Receive Date: 20110623
  Receipt Date: 20110613
  Transmission Date: 20111010
  Serious: Yes (Other)
  Sender: FDA-Public Use
  Company Number: 953540

PATIENT
  Age: 62 Year
  Sex: Male

DRUGS (9)
  1. PHENYLEPHRINE HCL [Suspect]
     Indication: HAEMODYNAMIC INSTABILITY
     Dosage: INTRAVENOUS (NOT OTHERWISE SPECIFIED)
     Route: 042
  2. VANCOMYCIN HYCHLORIDE [Concomitant]
  3. CEFEPIME HYDROCHLORIDE [Concomitant]
  4. ALBUMIN (HUMAN) [Suspect]
     Indication: HAEMODYNAMIC INSTABILITY
     Dosage: INTRAVENOUS (NOT OTHERWISE SPECIFIED)
     Route: 042
  5. LEVOFLOXACIN [Concomitant]
  6. FLUDROCORTISONE ACETATE [Concomitant]
  7. NIMODIPINE [Concomitant]
  8. SODIUM NITROPRUSSIDE [Concomitant]
  9. SODIUM CHLORIDE [Suspect]
     Indication: HAEMODYNAMIC INSTABILITY
     Dosage: INTRAVENOUS (NOT OTHERWISE SPECIFIED)
     Route: 042

REACTIONS (12)
  - SUBARACHNOID HAEMORRHAGE [None]
  - HYPOPERFUSION [None]
  - RENAL FAILURE ACUTE [None]
  - INTRACRANIAL ANEURYSM [None]
  - POSTERIOR REVERSIBLE ENCEPHALOPATHY SYNDROME [None]
  - RENAL TUBULAR NECROSIS [None]
  - LOSS OF CONSCIOUSNESS [None]
  - BLOOD PRESSURE SYSTOLIC INCREASED [None]
  - CEREBRAL VENTRICLE DILATATION [None]
  - HYDROCEPHALUS [None]
  - CEREBROVASCULAR SPASM [None]
  - CNS VENTRICULITIS [None]
